FAERS Safety Report 8827737 (Version 2)
Quarter: 2012Q4

REPORT INFORMATION
  Report Type: Report from Study
  Country: US (occurrence: US)
  Receive Date: 20121005
  Receipt Date: 20121012
  Transmission Date: 20130627
  Serious: Yes (Hospitalization, Other)
  Sender: FDA-Public Use
  Company Number: US-ABBOTT-12P-163-0988514-00

PATIENT
  Age: 24 Year
  Sex: Male

DRUGS (4)
  1. HUMIRA [Suspect]
     Indication: CROHN^S DISEASE
     Dates: start: 20120614, end: 20120918
  2. IMURAN [Concomitant]
     Indication: CROHN^S DISEASE
  3. ASACOL [Concomitant]
     Indication: CROHN^S DISEASE
  4. IRON [Concomitant]
     Indication: ANAEMIA

REACTIONS (9)
  - Pyrexia [Recovering/Resolving]
  - Abdominal pain [Recovered/Resolved]
  - Nausea [Recovering/Resolving]
  - Vomiting [Recovering/Resolving]
  - Gastrointestinal disorder [Unknown]
  - Fistula [Unknown]
  - Abscess [Unknown]
  - Nephrolithiasis [Unknown]
  - Peritoneal abscess [Unknown]
